FAERS Safety Report 4873978-X (Version None)
Quarter: 2006Q1

REPORT INFORMATION
  Report Type: 
  Country: None (occurrence: None)
  Receive Date: 20060104
  Receipt Date: 20051221
  Transmission Date: 20060701
  Serious: Yes (Hospitalization, Other)
  Sender: FDA-Public Use
  Company Number: 2005164277

PATIENT
  Age: 62 Year
  Sex: Male
  Weight: 65.318 kg

DRUGS (1)
  1. DILANTIN [Suspect]
     Indication: CONVULSION PROPHYLAXIS
     Dates: start: 20050228, end: 20050311

REACTIONS (25)
  - ANGIONEUROTIC OEDEMA [None]
  - ANTICONVULSANT DRUG LEVEL ABOVE THERAPEUTIC [None]
  - ARTERIOSCLEROSIS [None]
  - BRAIN OEDEMA [None]
  - CEREBRAL HAEMORRHAGE [None]
  - CONFUSIONAL STATE [None]
  - DISEASE RECURRENCE [None]
  - ERYTHEMA [None]
  - FATIGUE [None]
  - HYPERSENSITIVITY [None]
  - HYPOAESTHESIA [None]
  - JOINT RANGE OF MOTION DECREASED [None]
  - LUNG NEOPLASM [None]
  - MASS [None]
  - MENTAL STATUS CHANGES [None]
  - METASTASES TO CENTRAL NERVOUS SYSTEM [None]
  - OEDEMA PERIPHERAL [None]
  - PAIN [None]
  - PAIN IN EXTREMITY [None]
  - RADIATION SKIN INJURY [None]
  - RENAL CYST [None]
  - ROAD TRAFFIC ACCIDENT [None]
  - SKIN EXFOLIATION [None]
  - STEVENS-JOHNSON SYNDROME [None]
  - WEIGHT DECREASED [None]
